FAERS Safety Report 18380662 (Version 1)
Quarter: 2020Q4

REPORT INFORMATION
  Report Type: Other
  Country: CN (occurrence: CN)
  Receive Date: 20201014
  Receipt Date: 20201014
  Transmission Date: 20210114
  Serious: Yes (Other)
  Sender: FDA-Public Use
  Company Number: CN-ROCHE-2693755

PATIENT

DRUGS (1)
  1. BEVACIZUMAB. [Suspect]
     Active Substance: BEVACIZUMAB
     Indication: DIABETIC RETINOPATHY
     Route: 050

REACTIONS (6)
  - Intentional product use issue [Unknown]
  - Retinal haemorrhage [Recovered/Resolved]
  - Off label use [Unknown]
  - Conjunctival haemorrhage [Recovered/Resolved]
  - Iridocyclitis [Unknown]
  - Sensation of foreign body [Recovered/Resolved]
